FAERS Safety Report 10151419 (Version 2)
Quarter: 2014Q2

REPORT INFORMATION
  Report Type: Spontaneous
  Country: US (occurrence: US)
  Receive Date: 20140503
  Receipt Date: 20140503
  Transmission Date: 20141212
  Serious: Yes (Other)
  Sender: FDA-Public Use
  Company Number: PHEH2000US02098

PATIENT
  Sex: Male

DRUGS (7)
  1. COMTAN [Suspect]
     Indication: PARKINSON^S DISEASE
     Dosage: 200 MG BID
     Route: 048
     Dates: start: 20000420, end: 20000424
  2. COMTAN [Suspect]
     Dosage: 200 MG BID
     Route: 048
     Dates: start: 20000421, end: 20000424
  3. ARTHROTEC [Concomitant]
     Dosage: UNK UKN, UNK
  4. LANOXIN [Concomitant]
     Dosage: UNK UKN, UNK
  5. DETROL [Concomitant]
     Dosage: UNK UKN, UNK
  6. SINEMET-CR [Concomitant]
     Indication: PARKINSON^S DISEASE
     Dosage: UNK UKN, UNK
  7. SINEMET [Concomitant]
     Indication: PARKINSON^S DISEASE
     Dosage: UNK UKN, UNK

REACTIONS (2)
  - Diarrhoea [Recovered/Resolved]
  - Urticaria [Recovered/Resolved]
